FAERS Safety Report 24540722 (Version 1)
Quarter: 2024Q4

REPORT INFORMATION
  Report Type: Spontaneous
  Country: US (occurrence: US)
  Receive Date: 20241023
  Receipt Date: 20241023
  Transmission Date: 20250115
  Serious: Yes (Hospitalization)
  Sender: CIPLA
  Company Number: US-CIPLA LTD.-2024US11852

PATIENT

DRUGS (2)
  1. BUPROPION [Suspect]
     Active Substance: BUPROPION
     Dosage: UNK, TOTAL 9-12G (30 TO 40 TABLETS) COMBINED WITH 8-9 ALCOHOLIC BEVERAGES
     Route: 048
  2. ALCOHOL [Suspect]
     Active Substance: ALCOHOL
     Dosage: UNK, TOTAL BUPROPION 9-12G (30 TO 40 TABLETS) COMBINED WITH 8-9 ALCOHOLIC BEVERAGES
     Route: 048

REACTIONS (4)
  - Haemodynamic instability [Recovered/Resolved]
  - Mental status changes [Recovered/Resolved]
  - Areflexia [Recovered/Resolved]
  - Intentional overdose [Unknown]
